FAERS Safety Report 5074311-3 (Version None)
Quarter: 2006Q3

REPORT INFORMATION
  Report Type: 
  Country: None (occurrence: None)
  Receive Date: 20060808
  Receipt Date: 20050711
  Transmission Date: 20061208
  Serious: No
  Sender: FDA-Public Use
  Company Number: US-AMGEN-KDL142707

PATIENT
  Age: 75 Year
  Sex: Female

DRUGS (7)
  1. PROCRIT [Suspect]
     Indication: ANAEMIA
     Route: 058
  2. ASCORBIC ACID [Concomitant]
  3. VITAMINS [Concomitant]
  4. INSULIN [Concomitant]
  5. LIPITOR [Concomitant]
  6. PROTONIX [Concomitant]
  7. AVANDIA [Concomitant]

REACTIONS (2)
  - DIARRHOEA [None]
  - RECTAL HAEMORRHAGE [None]
